FAERS Safety Report 6308476-X (Version None)
Quarter: 2009Q3

REPORT INFORMATION
  Report Type: 
  Country: None (occurrence: None)
  Receive Date: 20090813
  Receipt Date: 20090812
  Transmission Date: 20100115
  Serious: Yes (Hospitalization)
  Sender: FDA-Public Use
  Company Number: PHEH2009US07196

PATIENT
  Sex: Female
  Weight: 53.968 kg

DRUGS (2)
  1. RECLAST [Suspect]
     Indication: OSTEOPOROSIS
     Dosage: 5 MG/100ML, 1X YEAR
     Route: 042
     Dates: start: 20090624
  2. METHOTREXATE [Concomitant]
     Indication: RHEUMATOID ARTHRITIS

REACTIONS (5)
  - BONE MARROW FAILURE [None]
  - DIALYSIS [None]
  - MUCOSAL INFLAMMATION [None]
  - MYALGIA [None]
  - RENAL FAILURE ACUTE [None]
